FAERS Safety Report 7606521-2 (Version None)
Quarter: 2011Q3

REPORT INFORMATION
  Report Type: 
  Country: None (occurrence: None)
  Receive Date: 20110713
  Receipt Date: 20110125
  Transmission Date: 20111222
  Serious: Yes (Death, Other)
  Sender: FDA-Public Use
  Company Number: US-BAYER-201011480NA

PATIENT
  Age: 89 Year
  Sex: Female
  Weight: 54.1 kg

DRUGS (20)
  1. CEFAZOLIN [Concomitant]
     Dosage: 2 DOSES
     Route: 042
     Dates: start: 20071008, end: 20071009
  2. CEFAZOLIN [Concomitant]
     Dosage: 2GM/2GM
     Dates: end: 20071126
  3. VANCOMYCIN [Concomitant]
     Dosage: 2 G, UNK
     Route: 061
     Dates: end: 20071126
  4. CLOPIDOGREL [Concomitant]
     Dosage: 75 MG, QD
     Route: 048
  5. HEPARIN [Concomitant]
     Dosage: 18,000 UNITS
     Dates: end: 20071126
  6. AMICAR [Concomitant]
     Dosage: UNK
     Dates: end: 20071126
  7. ACETYLSALICYLIC ACID SRT [Concomitant]
     Dosage: 325 MG, QD
     Route: 048
  8. PHENYLEPHRINE [PHENYLEPHRINE] [Concomitant]
     Dosage: 100 MCG
     Dates: end: 20071126
  9. ZOCOR [Concomitant]
     Dosage: 20 MG, UNK
  10. FUROSEMIDE [Concomitant]
     Dosage: 20 MG, UNK
     Route: 048
  11. SIMVASTATIN [Concomitant]
     Dosage: 20MG/Q PM
     Route: 048
  12. AMLODIPINE [Concomitant]
     Dosage: 10 MG, QD
     Route: 048
  13. DOPAMINE HCL [Concomitant]
     Dosage: UNK
     Dates: end: 20071126
  14. TRASYLOL [Suspect]
     Indication: CORONARY ARTERY BYPASS
     Dates: start: 20071128
  15. FUROSEMIDE [Concomitant]
     Dosage: 15 MG, UNK
     Dates: end: 20071126
  16. LISINOPRIL [Concomitant]
     Dosage: 40 MG, QD
     Route: 048
  17. HEPARIN [Concomitant]
     Dosage: ONE DOSE
     Dates: start: 20071109, end: 20071109
  18. RED BLOOD CELLS [Concomitant]
  19. LEVOPHED [Concomitant]
     Dosage: UNK
     Dates: end: 20071126
  20. NORVASC [Concomitant]
     Dosage: 5 MG, UNK

REACTIONS (24)
  - UNEVALUABLE EVENT [None]
  - FEAR [None]
  - ANHEDONIA [None]
  - POST PROCEDURAL HAEMORRHAGE [None]
  - HYPOTENSION [None]
  - CARDIAC FAILURE CONGESTIVE [None]
  - PAIN [None]
  - DEPRESSION [None]
  - CEREBROVASCULAR ACCIDENT [None]
  - BRADYCARDIA [None]
  - LUNG INFILTRATION [None]
  - RENAL FAILURE ACUTE [None]
  - ISCHAEMIC CARDIOMYOPATHY [None]
  - RENAL FAILURE [None]
  - CARDIAC DISORDER [None]
  - PLEURAL EFFUSION [None]
  - TROPONIN INCREASED [None]
  - RENAL IMPAIRMENT [None]
  - INJURY [None]
  - ORGAN FAILURE [None]
  - ANXIETY [None]
  - DEATH [None]
  - RENAL INJURY [None]
  - ATRIAL FIBRILLATION [None]
